FAERS Safety Report 8208256 (Version 7)
Quarter: 2014Q1

REPORT INFORMATION
  Report Type: Spontaneous
  Country: US (occurrence: US)
  Receive Date: 20111028
  Receipt Date: 20140127
  Transmission Date: 20141002
  Serious: Yes (Hospitalization)
  Sender: FDA-Public Use
  Company Number: US-GLAXOSMITHKLINE-A0950575A

PATIENT
  Age: 64 Year
  Sex: Female
  Weight: 81.8 kg

DRUGS (5)
  1. FLOLAN [Suspect]
     Indication: PULMONARY ARTERIAL HYPERTENSION
     Dosage: 20NGKM UNKNOWN
     Route: 042
     Dates: start: 20000511
  2. LETAIRIS [Concomitant]
     Dosage: 10MG PER DAY
     Route: 048
  3. ADCIRCA [Concomitant]
     Dosage: 20MG PER DAY
     Route: 048
  4. ALPRAZOLAM [Concomitant]
  5. CPAP [Concomitant]

REACTIONS (10)
  - Syncope [Not Recovered/Not Resolved]
  - Investigation [Not Recovered/Not Resolved]
  - Insomnia [Not Recovered/Not Resolved]
  - Swelling [Unknown]
  - Flushing [Unknown]
  - Somnolence [Unknown]
  - Insomnia [Unknown]
  - Therapeutic response decreased [Unknown]
  - Medical device complication [Unknown]
  - Central venous catheterisation [Unknown]
